FAERS Safety Report 21019794 (Version 2)
Quarter: 2022Q3

REPORT INFORMATION
  Report Type: Report from Study
  Country: US (occurrence: US)
  Receive Date: 20220628
  Receipt Date: 20220923
  Transmission Date: 20221027
  Serious: Yes (Other)
  Sender: FDA-Public Use
  Company Number: US-SANOFI-01163042

PATIENT
  Age: 76 Year
  Sex: Male

DRUGS (2)
  1. DUPIXENT [Suspect]
     Active Substance: DUPILUMAB
     Indication: Dermatitis atopic
     Dosage: 600 MG, 1X
     Route: 058
     Dates: start: 20220520, end: 20220520
  2. DUPIXENT [Suspect]
     Active Substance: DUPILUMAB
     Dosage: 300 MG, QOW
     Route: 058

REACTIONS (11)
  - Neoplasm malignant [Unknown]
  - Testicular swelling [Not Recovered/Not Resolved]
  - Peripheral swelling [Unknown]
  - Lymphadenopathy [Unknown]
  - Lacrimation increased [Unknown]
  - Photosensitivity reaction [Not Recovered/Not Resolved]
  - Eye discharge [Not Recovered/Not Resolved]
  - Toothache [Unknown]
  - Oral herpes [Unknown]
  - Arthralgia [Not Recovered/Not Resolved]
  - Eye irritation [Not Recovered/Not Resolved]

NARRATIVE: CASE EVENT DATE: 20220622
